FAERS Safety Report 6680635-6 (Version None)
Quarter: 2010Q2

REPORT INFORMATION
  Report Type: 
  Country: None (occurrence: None)
  Receive Date: 20100414
  Receipt Date: 20100407
  Transmission Date: 20101027
  Serious: Yes (Life-Threatening, Hospitalization)
  Sender: FDA-Public Use
  Company Number: JP-PFIZER INC-2010038081

PATIENT
  Age: 68 Year
  Sex: Female
  Weight: 59.9 kg

DRUGS (18)
  1. ATARAX [Suspect]
     Indication: PAIN
     Dosage: 25 MG, AS NEEDED
     Route: 030
     Dates: start: 20100321
  2. VOLTAREN [Suspect]
     Dosage: 25 MG, AS NEEDED
     Route: 054
     Dates: start: 20100321, end: 20100321
  3. ARTIST [Concomitant]
     Route: 048
     Dates: end: 20100320
  4. PLAVIX [Concomitant]
     Route: 048
     Dates: end: 20100320
  5. CALCIUM CARBONATE [Concomitant]
     Route: 048
     Dates: end: 20100320
  6. AMLODIPINE [Concomitant]
     Route: 048
     Dates: end: 20100320
  7. ADALAT CC [Concomitant]
     Route: 048
     Dates: end: 20100320
  8. CANDESARTAN CILEXETIL [Concomitant]
     Route: 048
     Dates: end: 20100320
  9. TAKEPRON [Concomitant]
     Route: 048
  10. DOXAZOSIN MESYLATE [Concomitant]
     Route: 048
     Dates: end: 20100320
  11. SENNOSIDE A+B CALCIUM [Concomitant]
     Route: 048
     Dates: end: 20100320
  12. HERBAL PREPARATION [Concomitant]
     Route: 048
     Dates: end: 20100320
  13. LOXONIN [Concomitant]
     Route: 048
     Dates: end: 20100320
  14. MUCOSTA [Concomitant]
     Route: 048
     Dates: end: 20100320
  15. CRAVIT [Concomitant]
     Route: 048
     Dates: start: 20100312, end: 20100316
  16. ALPROSTADIL [Concomitant]
  17. EPOGIN [Concomitant]
  18. FESIN [Concomitant]
     Dates: start: 20100227

REACTIONS (1)
  - BRADYCARDIA [None]
